FAERS Safety Report 12467025 (Version 1)
Quarter: 2016Q2

REPORT INFORMATION
  Report Type: Spontaneous
  Country: US (occurrence: None)
  Receive Date: 20160614
  Receipt Date: 20160614
  Transmission Date: 20160815
  Serious: No
  Sender: FDA-Public Use
  Company Number: None

PATIENT

DRUGS (2)
  1. ATENOLOL TABLETS ATENOLOL [Suspect]
     Active Substance: ATENOLOL
     Route: 048
  2. FLAGYL [Suspect]
     Active Substance: METRONIDAZOLE\METRONIDAZOLE HYDROCHLORIDE
     Route: 048

REACTIONS (2)
  - Wrong patient received medication [None]
  - Intercepted medication error [None]
